FAERS Safety Report 6642657-0 (Version None)
Quarter: 2010Q1

REPORT INFORMATION
  Report Type: 
  Country: None (occurrence: None)
  Receive Date: 20100319
  Receipt Date: 20100310
  Transmission Date: 20100710
  Serious: Yes (Hospitalization)
  Sender: FDA-Public Use
  Company Number: DE-BRISTOL-MYERS SQUIBB COMPANY-15010846

PATIENT
  Sex: Male

DRUGS (2)
  1. ABILIFY [Suspect]
  2. LEPONEX [Suspect]

REACTIONS (3)
  - BLOOD PRESSURE FLUCTUATION [None]
  - HYPERSEXUALITY [None]
  - RESTLESSNESS [None]
